FAERS Safety Report 18351597 (Version 2)
Quarter: 2020Q4

REPORT INFORMATION
  Report Type: Spontaneous
  Country: IT (occurrence: IT)
  Receive Date: 20201006
  Receipt Date: 20201012
  Transmission Date: 20210114
  Serious: Yes (Life-Threatening, Hospitalization, Other)
  Sender: FDA-Public Use
  Company Number: IT-PFIZER INC-2020381736

PATIENT
  Age: 65 Year
  Sex: Female

DRUGS (8)
  1. DOXORUBICIN HCL [Suspect]
     Active Substance: DOXORUBICIN HYDROCHLORIDE
     Indication: OESOPHAGEAL CANCER METASTATIC
  2. DOXORUBICIN HCL [Suspect]
     Active Substance: DOXORUBICIN HYDROCHLORIDE
     Indication: INVASIVE DUCTAL BREAST CARCINOMA
     Dosage: 450 MG/M2, CYCLIC (CUMULATIVE DOSE)
  3. ANASTROZOLE. [Concomitant]
     Active Substance: ANASTROZOLE
     Indication: INVASIVE DUCTAL BREAST CARCINOMA
     Dosage: UNK, CYCLIC
  4. DOCETAXEL. [Concomitant]
     Active Substance: DOCETAXEL
     Indication: OESOPHAGEAL CANCER METASTATIC
     Dosage: 110 MG, CYCLIC
  5. ANASTROZOLE. [Concomitant]
     Active Substance: ANASTROZOLE
     Indication: HORMONE THERAPY
  6. CYCLOPHOSPHAMIDE. [Concomitant]
     Active Substance: CYCLOPHOSPHAMIDE
     Indication: INVASIVE DUCTAL BREAST CARCINOMA
     Dosage: 800 MG, CYCLIC
  7. DOCETAXEL. [Concomitant]
     Active Substance: DOCETAXEL
     Indication: INVASIVE DUCTAL BREAST CARCINOMA
  8. CYCLOPHOSPHAMIDE. [Concomitant]
     Active Substance: CYCLOPHOSPHAMIDE
     Indication: OESOPHAGEAL CANCER METASTATIC

REACTIONS (8)
  - Right ventricular dilatation [Recovering/Resolving]
  - Pulmonary arterial pressure abnormal [Recovering/Resolving]
  - Mitral valve incompetence [Recovering/Resolving]
  - Cardiac failure congestive [Recovering/Resolving]
  - Right ventricular dysfunction [Recovering/Resolving]
  - Atrial enlargement [Recovering/Resolving]
  - Cardiomyopathy [Recovering/Resolving]
  - Tricuspid valve incompetence [Recovering/Resolving]
